FAERS Safety Report 24417078 (Version 2)
Quarter: 2024Q4

REPORT INFORMATION
  Report Type: Spontaneous
  Country: US (occurrence: US)
  Receive Date: 20241009
  Receipt Date: 20241031
  Transmission Date: 20250114
  Serious: No
  Sender: BLUEPRINT MEDICINES
  Company Number: US-Blueprint Medicines Corporation-4934

PATIENT
  Age: 42 Year
  Sex: Female

DRUGS (1)
  1. AYVAKIT [Suspect]
     Active Substance: AVAPRITINIB
     Indication: Haematopoietic neoplasm
     Route: 065
     Dates: start: 20210801

REACTIONS (9)
  - Fatigue [Unknown]
  - Memory impairment [Unknown]
  - Eye swelling [Unknown]
  - Sinus congestion [Unknown]
  - Aphonia [Unknown]
  - Pain [Unknown]
  - Cough [Unknown]
  - Illness [Unknown]
  - Product dose omission issue [Unknown]

NARRATIVE: CASE EVENT DATE: 20240928
